FAERS Safety Report 5112654-5 (Version None)
Quarter: 2006Q3

REPORT INFORMATION
  Report Type: 
  Country: None (occurrence: None)
  Receive Date: 20060922
  Receipt Date: 20060913
  Transmission Date: 20061208
  Serious: Yes (Other)
  Sender: FDA-Public Use
  Company Number: US-JNJFOC-20060904043

PATIENT
  Sex: Female
  Weight: 71.67 kg

DRUGS (2)
  1. FENTANYL TRANSDERMAL SYSTEM [Suspect]
     Indication: FIBROMYALGIA
     Route: 062
     Dates: start: 20050201
  2. MS CONTIN [Suspect]
     Indication: FIBROMYALGIA
     Route: 048
     Dates: start: 20040101

REACTIONS (1)
  - BLOOD CHOLESTEROL INCREASED [None]
